FAERS Safety Report 5234913-8 (Version None)
Quarter: 2007Q1

REPORT INFORMATION
  Report Type: 
  Country: None (occurrence: None)
  Receive Date: 20070209
  Receipt Date: 20070125
  Transmission Date: 20070707
  Serious: Yes (Hospitalization)
  Sender: FDA-Public Use
  Company Number: HQWYE046426DEC06

PATIENT
  Sex: Male
  Weight: 66 kg

DRUGS (13)
  1. ENBREL [Suspect]
     Indication: RHEUMATOID ARTHRITIS
     Route: 058
     Dates: start: 20050705, end: 20061222
  2. ALFAROL [Concomitant]
     Indication: OSTEOPOROSIS PROPHYLAXIS
     Dosage: 1 UG/DAY
     Dates: start: 20050208
  3. LORCAM [Concomitant]
     Indication: RHEUMATOID ARTHRITIS
     Route: 048
     Dates: start: 20050208
  4. TAKEPRON [Concomitant]
     Indication: PROPHYLAXIS AGAINST GASTROINTESTINAL ULCER
     Route: 048
     Dates: start: 20050208
  5. PURSENNID [Concomitant]
     Indication: CONSTIPATION
     Route: 048
     Dates: start: 20030113
  6. PROGRAF [Concomitant]
     Indication: RHEUMATOID ARTHRITIS
     Route: 048
     Dates: start: 20050701
  7. ACUATIM [Concomitant]
     Dosage: POR
  8. MYCOSPOR [Concomitant]
     Dosage: LIQ
  9. LAMISIL [Concomitant]
     Dosage: POR
  10. SELTOUCH [Concomitant]
     Dosage: EXT
  11. ASPIRIN [Concomitant]
     Route: 048
     Dates: start: 20050101
  12. PREDNISOLONE [Concomitant]
     Indication: RHEUMATOID ARTHRITIS
     Route: 048
     Dates: start: 20030401
  13. KETOPROFEN [Concomitant]
     Dosage: (TO) EXT

REACTIONS (1)
  - CRYPTOGENIC ORGANISING PNEUMONIA [None]
